FAERS Safety Report 6048816-2 (Version None)
Quarter: 2009Q1

REPORT INFORMATION
  Report Type: 
  Country: None (occurrence: None)
  Receive Date: 20090123
  Receipt Date: 20090114
  Transmission Date: 20090719
  Serious: Yes (Hospitalization, Other)
  Sender: FDA-Public Use
  Company Number: US-MERCK-0711USA01867

PATIENT
  Age: 56 Year
  Sex: Male
  Weight: 63 kg

DRUGS (7)
  1. FOSAMAX [Suspect]
     Indication: OSTEOPOROSIS
     Route: 048
     Dates: start: 19980301, end: 20010201
  2. FOSAMAX [Suspect]
     Route: 048
     Dates: start: 20010201, end: 20050601
  3. FOSAMAX [Suspect]
     Indication: OSTEOPENIA
     Route: 048
     Dates: start: 19980301, end: 20010201
  4. FOSAMAX [Suspect]
     Route: 048
     Dates: start: 20010201, end: 20050601
  5. ARAVA [Concomitant]
     Indication: RHEUMATOID ARTHRITIS
     Route: 065
     Dates: start: 19980101
  6. FOSAMAX PLUS D [Suspect]
     Indication: OSTEOPOROSIS
     Route: 048
     Dates: start: 20050601, end: 20050101
  7. PROPOXYPHENE HYDROCHLORIDE [Concomitant]
     Indication: PAIN
     Route: 065
     Dates: start: 19980101

REACTIONS (59)
  - ABDOMINAL PAIN [None]
  - ABSCESS JAW [None]
  - ABSCESS LIMB [None]
  - ACUTE SINUSITIS [None]
  - ANAEMIA [None]
  - ARTHROPATHY [None]
  - ASCITES [None]
  - ASTHMA [None]
  - AZOTAEMIA [None]
  - BACTERAEMIA [None]
  - BONE DISORDER [None]
  - CARDIAC FAILURE CONGESTIVE [None]
  - CARDIAC TAMPONADE [None]
  - CELLULITIS [None]
  - CHRONIC OBSTRUCTIVE PULMONARY DISEASE [None]
  - COMMINUTED FRACTURE [None]
  - CONTUSION [None]
  - DECUBITUS ULCER [None]
  - DERMAL CYST [None]
  - DERMATITIS CONTACT [None]
  - DEVICE RELATED INFECTION [None]
  - DIABETES MELLITUS [None]
  - DRUG HYPERSENSITIVITY [None]
  - DYSPNOEA EXERTIONAL [None]
  - FALL [None]
  - FISTULA [None]
  - GASTROOESOPHAGEAL REFLUX DISEASE [None]
  - GENERALISED OEDEMA [None]
  - GINGIVAL ABSCESS [None]
  - HYPERPARATHYROIDISM [None]
  - HYPERSENSITIVITY [None]
  - HYPERTENSION [None]
  - HYPERTENSIVE HEART DISEASE [None]
  - HYPERURICAEMIA [None]
  - HYPONATRAEMIA [None]
  - IMPAIRED HEALING [None]
  - IMPAIRED SELF-CARE [None]
  - INGUINAL HERNIA [None]
  - JOINT FLUID DRAINAGE [None]
  - JOINT INJURY [None]
  - LEUKOCYTOSIS [None]
  - LOWER RESPIRATORY TRACT INFECTION [None]
  - MALNUTRITION [None]
  - MOTOR DYSFUNCTION [None]
  - NEUROPATHY PERIPHERAL [None]
  - OEDEMA [None]
  - OSTEOMYELITIS [None]
  - OSTEONECROSIS [None]
  - PERICARDIAL EFFUSION [None]
  - PERICARDITIS [None]
  - PNEUMONIA [None]
  - PULMONARY HYPERTENSION [None]
  - RENAL FAILURE CHRONIC [None]
  - RESPIRATORY DISTRESS [None]
  - RESPIRATORY FAILURE [None]
  - SKELETAL INJURY [None]
  - SPINAL OSTEOARTHRITIS [None]
  - STRIDOR [None]
  - ULCER [None]
